FAERS Safety Report 10535880 (Version 1)
Quarter: 2014Q4

REPORT INFORMATION
  Report Type: Spontaneous
  Country: US (occurrence: US)
  Receive Date: 20141022
  Receipt Date: 20141022
  Transmission Date: 20150529
  Serious: No
  Sender: FDA-Public Use
  Company Number: US-RECKITT BENCKISER PHARMACEUTICAL, INC-RB-60519-2013

PATIENT

DRUGS (1)
  1. SUBOXONE [Suspect]
     Active Substance: BUPRENORPHINE HYDROCHLORIDE\NALOXONE HYDROCHLORIDE
     Indication: DRUG DEPENDENCE
     Dosage: SUBOXONE FILM; THE PATIENT WAS PRESCRIBED 16 MG DAILY, BUT WAS TAKING 1/3 OF A FILM DAILY
     Route: 060
     Dates: start: 20131029, end: 20131103

REACTIONS (6)
  - Heart rate increased [Recovered/Resolved]
  - Off label use [Recovered/Resolved]
  - Intentional underdose [Recovered/Resolved]
  - Dyspnoea [Recovered/Resolved]
  - Wrong technique in drug usage process [Recovered/Resolved]
  - Lip swelling [Recovered/Resolved]

NARRATIVE: CASE EVENT DATE: 201310
